FAERS Safety Report 6997376-8 (Version None)
Quarter: 2010Q3

REPORT INFORMATION
  Report Type: 
  Country: None (occurrence: None)
  Receive Date: 20100918
  Receipt Date: 20091007
  Transmission Date: 20110219
  Serious: No
  Sender: FDA-Public Use
  Company Number: US-WYE-H11521009

PATIENT
  Sex: Female
  Weight: 62.65 kg

DRUGS (3)
  1. PRISTIQ [Suspect]
     Indication: DEPRESSION
     Route: 048
     Dates: start: 20091006
  2. CYTOMEL [Concomitant]
  3. SYNTHROID [Concomitant]

REACTIONS (5)
  - FATIGUE [None]
  - HEADACHE [None]
  - INSOMNIA [None]
  - OEDEMA PERIPHERAL [None]
  - TINNITUS [None]
